FAERS Safety Report 4928656-5 (Version None)
Quarter: 2006Q1

REPORT INFORMATION
  Report Type: 
  Country: None (occurrence: None)
  Receive Date: 20060227
  Receipt Date: 20060227
  Transmission Date: 20060701
  Serious: Yes (Life-Threatening)
  Sender: FDA-Public Use
  Company Number: None

PATIENT

DRUGS (2)
  1. OMACOR [Suspect]
  2. AMICAR [Suspect]

REACTIONS (1)
  - MEDICATION ERROR [None]
